FAERS Safety Report 6906659-9 (Version None)
Quarter: 2010Q3

REPORT INFORMATION
  Report Type: 
  Country: None (occurrence: None)
  Receive Date: 20100804
  Receipt Date: 20100723
  Transmission Date: 20110219
  Serious: Yes (Other)
  Sender: FDA-Public Use
  Company Number: US-PFIZER INC-2010093497

PATIENT
  Sex: Male
  Weight: 97.052 kg

DRUGS (10)
  1. CHANTIX [Suspect]
     Indication: SMOKING CESSATION THERAPY
     Dosage: 1 MG, 2X/DAY
     Route: 048
     Dates: start: 20090101, end: 20090101
  2. CHANTIX [Suspect]
     Dosage: 1/2 OF 0.5 MG, 1X/DAY
     Route: 048
     Dates: start: 20100726
  3. OXYCONTIN [Concomitant]
     Dosage: 80 MG, 3X/DAY
  4. PROPRANOLOL [Concomitant]
     Indication: HYPERTENSION
     Dosage: UNK
  5. OXYCODONE HCL [Concomitant]
     Indication: PAIN
     Dosage: UNK
  6. ROBAXIN [Concomitant]
     Indication: MUSCLE RELAXANT THERAPY
     Dosage: UNK
  7. FLEXERIL [Concomitant]
     Indication: MUSCLE RELAXANT THERAPY
     Dosage: UNK
  8. DARVOCET [Concomitant]
     Dosage: UNK
  9. LORAZEPAM [Concomitant]
     Dosage: UNK
  10. MORPHINE [Concomitant]
     Dosage: UNK

REACTIONS (3)
  - ABNORMAL BEHAVIOUR [None]
  - DEPRESSION [None]
  - HALLUCINATION [None]
